FAERS Safety Report 7563076-9 (Version None)
Quarter: 2011Q2

REPORT INFORMATION
  Report Type: 
  Country: None (occurrence: None)
  Receive Date: 20110622
  Receipt Date: 20110610
  Transmission Date: 20111010
  Serious: Yes (Other)
  Sender: FDA-Public Use
  Company Number: US-AMGEN-USASP2011027152

PATIENT
  Age: 58 Year
  Sex: Female
  Weight: 48.526 kg

DRUGS (3)
  1. AVASTIN [Concomitant]
  2. TAXOL [Concomitant]
  3. XGEVA [Suspect]
     Indication: METASTASES TO BONE
     Dosage: 120 MG, QMO
     Dates: start: 20110513, end: 20110513

REACTIONS (3)
  - DEPRESSION [None]
  - ARTHRALGIA [None]
  - BONE PAIN [None]
